FAERS Safety Report 25598129 (Version 1)
Quarter: 2025Q3

REPORT INFORMATION
  Report Type: Spontaneous
  Country: EU (occurrence: EU)
  Receive Date: 20250723
  Receipt Date: 20250723
  Transmission Date: 20251020
  Serious: Yes (Death, Other)
  Sender: MYLAN
  Company Number: EU-SUN PHARMACEUTICAL INDUSTRIES LTD-2025R1-515131

PATIENT
  Age: 66 Year
  Sex: Female

DRUGS (11)
  1. VANCOMYCIN [Suspect]
     Active Substance: VANCOMYCIN
     Indication: Antibiotic therapy
  2. DOXYCYCLINE [Suspect]
     Active Substance: DOXYCYCLINE
     Indication: Antibiotic therapy
  3. ERTAPENEM [Suspect]
     Active Substance: ERTAPENEM
     Indication: Pyrexia
  4. ERTAPENEM [Suspect]
     Active Substance: ERTAPENEM
     Indication: Malaise
  5. ERTAPENEM [Suspect]
     Active Substance: ERTAPENEM
     Indication: Pain
  6. MEROPENEM [Suspect]
     Active Substance: MEROPENEM
     Indication: Pyrexia
  7. MEROPENEM [Suspect]
     Active Substance: MEROPENEM
     Indication: Malaise
  8. MEROPENEM [Suspect]
     Active Substance: MEROPENEM
     Indication: Pain
  9. SULFAMETHOXAZOLE\TRIMETHOPRIM [Suspect]
     Active Substance: SULFAMETHOXAZOLE\TRIMETHOPRIM
     Indication: Antibiotic therapy
  10. METRONIDAZOLE [Suspect]
     Active Substance: METRONIDAZOLE
     Indication: Antibiotic therapy
  11. DAPTOMYCIN [Suspect]
     Active Substance: DAPTOMYCIN
     Indication: Antibiotic therapy

REACTIONS (1)
  - Condition aggravated [Fatal]
